FAERS Safety Report 21674623 (Version 1)
Quarter: 2022Q4

REPORT INFORMATION
  Report Type: Spontaneous
  Country: US (occurrence: US)
  Receive Date: 20221202
  Receipt Date: 20221202
  Transmission Date: 20230112
  Serious: No
  Sender: FDA-Public Use
  Company Number: US-SA-SAC20221128000185

PATIENT
  Sex: Female
  Weight: 66.67 kg

DRUGS (10)
  1. DUPIXENT [Suspect]
     Active Substance: DUPILUMAB
     Indication: Nasal polyps
     Dosage: 300 MG, QOW
     Route: 058
  2. OXYCODONE [Concomitant]
     Active Substance: OXYCODONE
  3. SIMPLY SALINE [Concomitant]
  4. BUDESONIDE [Concomitant]
     Active Substance: BUDESONIDE
  5. GENTAMICIN [Concomitant]
     Active Substance: GENTAMICIN
  6. MUPIROCIN [Concomitant]
     Active Substance: MUPIROCIN
  7. METHYLPREDNISOLONE [Concomitant]
     Active Substance: METHYLPREDNISOLONE
  8. ASPIRIN [Concomitant]
     Active Substance: ASPIRIN
  9. HYDROXYZINE HYDROCHLORIDE [Concomitant]
     Active Substance: HYDROXYZINE HYDROCHLORIDE
  10. ZOLOFT [Concomitant]
     Active Substance: SERTRALINE HYDROCHLORIDE

REACTIONS (2)
  - Anxiety [Unknown]
  - Injection site pain [Unknown]
